FAERS Safety Report 17910538 (Version 3)
Quarter: 2021Q1

REPORT INFORMATION
  Report Type: Other
  Country: KR (occurrence: KR)
  Receive Date: 20200618
  Receipt Date: 20210312
  Transmission Date: 20210419
  Serious: Yes (Hospitalization, Other)
  Sender: FDA-Public Use
  Company Number: KR-ROCHE-2616231

PATIENT
  Age: 61 Year
  Sex: Female

DRUGS (65)
  1. PERTUZUMAB. [Suspect]
     Active Substance: PERTUZUMAB
     Route: 065
     Dates: start: 20200204
  2. CARPLAN [Concomitant]
     Active Substance: CARBOPLATIN
     Route: 042
     Dates: start: 20200114, end: 20200114
  3. PLAKON [Concomitant]
     Indication: CHEMOTHERAPY SIDE EFFECT PROPHYLAXIS
     Route: 042
     Dates: start: 20191112
  4. TYLENOL 8HR [Concomitant]
     Active Substance: ACETAMINOPHEN
     Route: 048
     Dates: start: 20191223, end: 20191230
  5. MACPERAN [Concomitant]
     Active Substance: METOCLOPRAMIDE HYDROCHLORIDE
     Route: 048
     Dates: start: 20191225, end: 20191230
  6. GASTER [Concomitant]
     Active Substance: FAMOTIDINE
     Route: 048
     Dates: start: 20191113, end: 20191218
  7. TRIDOL [Concomitant]
     Active Substance: TRAMADOL HYDROCHLORIDE
     Route: 042
     Dates: start: 20191223, end: 20191223
  8. BEARSE [Concomitant]
     Active Substance: DIMETHICONE\PANCRELIPASE\URSODIOL
     Route: 048
     Dates: start: 20200221, end: 20200221
  9. PERTUZUMAB. [Suspect]
     Active Substance: PERTUZUMAB
     Route: 065
     Dates: start: 20200114
  10. DOCETAXEL. [Suspect]
     Active Substance: DOCETAXEL
     Route: 042
     Dates: start: 20200114, end: 20200204
  11. CARPLAN [Concomitant]
     Active Substance: CARBOPLATIN
     Route: 042
     Dates: start: 20200204, end: 20200204
  12. DEXAMETHASONE. [Concomitant]
     Active Substance: DEXAMETHASONE
     Dates: start: 20191113, end: 20200205
  13. TYLENOL 8HR [Concomitant]
     Active Substance: ACETAMINOPHEN
     Route: 048
     Dates: start: 20191113, end: 20191118
  14. DICAMAX [Concomitant]
     Indication: OSTEOPENIA
     Route: 048
     Dates: start: 20191016
  15. MACPERAN [Concomitant]
     Active Substance: METOCLOPRAMIDE HYDROCHLORIDE
     Indication: NAUSEA
     Route: 048
     Dates: start: 20191113, end: 20191118
  16. LOPAINE [Concomitant]
     Route: 048
     Dates: start: 20191225, end: 20200104
  17. ZYPREXA [Concomitant]
     Active Substance: OLANZAPINE
     Indication: NAUSEA
     Route: 048
     Dates: start: 20191202, end: 20200103
  18. NORVASC [Concomitant]
     Active Substance: AMLODIPINE BESYLATE
     Route: 048
     Dates: start: 20191204, end: 20191204
  19. SMECTA [Concomitant]
     Active Substance: MONTMORILLONITE
     Route: 048
     Dates: start: 20200107, end: 20200204
  20. TYLENOL 8HR [Concomitant]
     Active Substance: ACETAMINOPHEN
     Indication: CHEMOTHERAPY SIDE EFFECT PROPHYLAXIS
     Route: 048
     Dates: start: 20191112, end: 20200204
  21. TYLENOL [Concomitant]
     Active Substance: ACETAMINOPHEN
     Route: 048
     Dates: start: 20191202, end: 20191209
  22. TYLENOL [Concomitant]
     Active Substance: ACETAMINOPHEN
     Route: 048
     Dates: start: 20191223, end: 20191230
  23. MACPERAN [Concomitant]
     Active Substance: METOCLOPRAMIDE HYDROCHLORIDE
     Route: 048
     Dates: start: 20191204, end: 20191209
  24. ZYPREXA [Concomitant]
     Active Substance: OLANZAPINE
     Route: 048
     Dates: start: 20200113, end: 20200113
  25. NEXIUM [Concomitant]
     Active Substance: ESOMEPRAZOLE MAGNESIUM
     Route: 048
     Dates: start: 20191203, end: 20200114
  26. CITOPCIN [Concomitant]
     Indication: INFECTION PROPHYLAXIS
     Dates: start: 20200113, end: 20200205
  27. TRASTUZUMAB. [Suspect]
     Active Substance: TRASTUZUMAB
     Route: 042
     Dates: start: 20191112
  28. DOCETAXEL. [Suspect]
     Active Substance: DOCETAXEL
     Indication: BREAST CANCER
     Route: 042
     Dates: start: 20191015, end: 20191015
  29. CARPLAN [Concomitant]
     Active Substance: CARBOPLATIN
     Indication: BREAST CANCER
     Route: 042
     Dates: start: 20191015, end: 20191015
  30. DEXAMETHASONE. [Concomitant]
     Active Substance: DEXAMETHASONE
     Indication: CHEMOTHERAPY SIDE EFFECT PROPHYLAXIS
     Route: 048
     Dates: start: 20191111, end: 20200204
  31. ALOXI [Concomitant]
     Active Substance: PALONOSETRON HYDROCHLORIDE
     Indication: CHEMOTHERAPY SIDE EFFECT PROPHYLAXIS
     Route: 042
     Dates: start: 20191112, end: 20200204
  32. NORVASC [Concomitant]
     Active Substance: AMLODIPINE BESYLATE
     Route: 048
     Dates: start: 20200113, end: 20200114
  33. MEDILAC DS [Concomitant]
     Indication: DIARRHOEA
     Dosage: 1 OTHERS (CAP)
     Route: 048
     Dates: start: 20191111
  34. CARPLAN [Concomitant]
     Active Substance: CARBOPLATIN
     Indication: BREAST CANCER
     Route: 042
     Dates: start: 20191015, end: 20191015
  35. TYLENOL [Concomitant]
     Active Substance: ACETAMINOPHEN
     Route: 048
     Dates: start: 20200113, end: 20200120
  36. MACPERAN [Concomitant]
     Active Substance: METOCLOPRAMIDE HYDROCHLORIDE
     Route: 048
     Dates: start: 20191211, end: 20191216
  37. MACPERAN [Concomitant]
     Active Substance: METOCLOPRAMIDE HYDROCHLORIDE
     Route: 048
     Dates: start: 20200205, end: 20200210
  38. NORVASC [Concomitant]
     Active Substance: AMLODIPINE BESYLATE
     Route: 048
     Dates: start: 20191223, end: 20191225
  39. MEGACE [Concomitant]
     Active Substance: MEGESTROL ACETATE
     Route: 048
     Dates: start: 20191213, end: 20191225
  40. TRESTAN [Concomitant]
     Route: 048
     Dates: start: 20191224, end: 20200107
  41. GRASIN [Concomitant]
     Route: 042
     Dates: start: 20200212, end: 20200213
  42. LOPAINE [Concomitant]
     Indication: DIARRHOEA
     Route: 048
     Dates: start: 20191121, end: 20191128
  43. MAXPIME [Concomitant]
  44. GRASIN [Concomitant]
     Route: 042
     Dates: start: 20200102, end: 20200104
  45. PERTUZUMAB. [Suspect]
     Active Substance: PERTUZUMAB
     Indication: BREAST CANCER
     Route: 065
     Dates: start: 20191015
  46. PERTUZUMAB. [Suspect]
     Active Substance: PERTUZUMAB
     Route: 065
     Dates: start: 20191224
  47. TRASTUZUMAB. [Suspect]
     Active Substance: TRASTUZUMAB
     Indication: BREAST CANCER
     Route: 042
     Dates: start: 20191015, end: 20191015
  48. CARPLAN [Concomitant]
     Active Substance: CARBOPLATIN
     Route: 042
     Dates: start: 20191112
  49. EMEND [Concomitant]
     Active Substance: APREPITANT
     Indication: CHEMOTHERAPY SIDE EFFECT PROPHYLAXIS
     Route: 042
  50. TYLENOL 8HR [Concomitant]
     Active Substance: ACETAMINOPHEN
     Route: 048
     Dates: start: 20200113, end: 20200120
  51. TYLENOL 8HR [Concomitant]
     Active Substance: ACETAMINOPHEN
     Route: 048
     Dates: start: 20200122, end: 20200203
  52. CARPLAN [Concomitant]
     Active Substance: CARBOPLATIN
     Route: 042
     Dates: start: 20191112, end: 20191224
  53. CARPLAN [Concomitant]
     Active Substance: CARBOPLATIN
     Route: 042
     Dates: start: 20200204, end: 20200204
  54. TYLENOL [Concomitant]
     Active Substance: ACETAMINOPHEN
     Route: 048
     Dates: start: 20200205, end: 20200210
  55. MACPERAN [Concomitant]
     Active Substance: METOCLOPRAMIDE HYDROCHLORIDE
     Route: 048
     Dates: start: 20200115, end: 20200120
  56. PERTUZUMAB. [Suspect]
     Active Substance: PERTUZUMAB
     Route: 065
     Dates: start: 20191112
  57. PERTUZUMAB. [Suspect]
     Active Substance: PERTUZUMAB
     Route: 065
     Dates: start: 20191203
  58. DOCETAXEL. [Suspect]
     Active Substance: DOCETAXEL
     Route: 042
     Dates: start: 20191112
  59. TYLENOL 8HR [Concomitant]
     Active Substance: ACETAMINOPHEN
     Route: 048
     Dates: start: 20191202, end: 20191209
  60. CARPLAN [Concomitant]
     Active Substance: CARBOPLATIN
     Route: 042
     Dates: start: 20200114, end: 20200114
  61. TYLENOL [Concomitant]
     Active Substance: ACETAMINOPHEN
     Route: 048
     Dates: start: 20191112, end: 20200204
  62. MACPERAN [Concomitant]
     Active Substance: METOCLOPRAMIDE HYDROCHLORIDE
     Route: 048
     Dates: start: 20191121, end: 20191126
  63. SMECTA [Concomitant]
     Active Substance: MONTMORILLONITE
     Route: 048
     Dates: start: 20200107, end: 20200204
  64. SMECTA [Concomitant]
     Active Substance: MONTMORILLONITE
     Route: 048
     Dates: start: 20200212, end: 20200225
  65. BEARSE [Concomitant]
     Active Substance: DIMETHICONE\PANCRELIPASE\URSODIOL
     Route: 048
     Dates: start: 20200215, end: 20200215

REACTIONS (11)
  - Neutrophil count decreased [Recovered/Resolved]
  - Anaemia [Recovering/Resolving]
  - Diarrhoea [Recovered/Resolved]
  - Arthralgia [Recovered/Resolved]
  - Nausea [Recovering/Resolving]
  - Dysphagia [Recovering/Resolving]
  - Abdominal pain [Recovered/Resolved]
  - Hypokalaemia [Recovering/Resolving]
  - Rhinorrhoea [Recovered/Resolved]
  - Fatigue [Recovering/Resolving]
  - Pyrexia [Recovered/Resolved]

NARRATIVE: CASE EVENT DATE: 201911
